APPROVED DRUG PRODUCT: ZINC CHLORIDE IN PLASTIC CONTAINER
Active Ingredient: ZINC CHLORIDE
Strength: EQ 1MG ZINC/ML
Dosage Form/Route: INJECTABLE;INJECTION
Application: N018959 | Product #001 | TE Code: AP
Applicant: HOSPIRA INC
Approved: Jun 26, 1986 | RLD: Yes | RS: Yes | Type: RX